FAERS Safety Report 11166925 (Version 1)
Quarter: 2015Q2

REPORT INFORMATION
  Report Type: Spontaneous
  Country: US (occurrence: None)
  Receive Date: 20150604
  Receipt Date: 20150604
  Transmission Date: 20150821
  Serious: No
  Sender: FDA-Public Use
  Company Number: None

PATIENT
  Age: 80 Year
  Sex: Male
  Weight: 89.3 kg

DRUGS (1)
  1. LISINOPRIL. [Suspect]
     Active Substance: LISINOPRIL
     Indication: HYPERTENSION
     Route: 048
     Dates: start: 20141204, end: 20141211

REACTIONS (4)
  - Vision blurred [None]
  - Asthenia [None]
  - Fatigue [None]
  - Eye swelling [None]

NARRATIVE: CASE EVENT DATE: 20141211
